FAERS Safety Report 10343045 (Version 4)
Quarter: 2014Q4

REPORT INFORMATION
  Report Type: Spontaneous
  Country: GB (occurrence: GB)
  Receive Date: 20140725
  Receipt Date: 20141110
  Transmission Date: 20150528
  Serious: Yes (Other)
  Sender: FDA-Public Use
  Company Number: GB-JNJFOC-20140715403

PATIENT

DRUGS (2)
  1. INFLIXIMAB, RECOMBINANT [Suspect]
     Active Substance: INFLIXIMAB
     Indication: CROHN^S DISEASE
     Route: 042
  2. ADALIMUMAB [Suspect]
     Active Substance: ADALIMUMAB
     Indication: CROHN^S DISEASE
     Route: 065

REACTIONS (8)
  - Neoplasm [Unknown]
  - Viral infection [Unknown]
  - Bacterial infection [Unknown]
  - Pulmonary tuberculosis [Unknown]
  - Infusion related reaction [Unknown]
  - Skin disorder [Unknown]
  - Lymphoma [Unknown]
  - Neurological symptom [Unknown]
